FAERS Safety Report 17294845 (Version 2)
Quarter: 2020Q1

REPORT INFORMATION
  Report Type: Spontaneous
  Country: US (occurrence: US)
  Receive Date: 20200121
  Receipt Date: 20200203
  Transmission Date: 20200409
  Serious: No
  Sender: FDA-Public Use
  Company Number: US-MYLANLABS-2020M1002146

PATIENT
  Sex: Male
  Weight: 118 kg

DRUGS (2)
  1. MUSE [Suspect]
     Active Substance: ALPROSTADIL
     Dosage: UNK
     Dates: start: 20200104
  2. MUSE [Suspect]
     Active Substance: ALPROSTADIL
     Indication: ERECTILE DYSFUNCTION
     Dosage: 250 MICROGRAM, PRN
     Route: 066
     Dates: start: 20191231

REACTIONS (1)
  - Administration site pain [Recovered/Resolved]

NARRATIVE: CASE EVENT DATE: 20191231
